FAERS Safety Report 18858034 (Version 1)
Quarter: 2021Q1

REPORT INFORMATION
  Report Type: Spontaneous
  Country: US (occurrence: US)
  Receive Date: 20210205
  Receipt Date: 20210205
  Transmission Date: 20210420
  Serious: Yes (Hospitalization)
  Sender: FDA-Public Use
  Company Number: None

PATIENT
  Age: 72 Year
  Sex: Male
  Weight: 112 kg

DRUGS (7)
  1. MOMETASONE?FORMOTEROL [Concomitant]
  2. ALBUTEROL. [Concomitant]
     Active Substance: ALBUTEROL
  3. CETIRIZINE [Concomitant]
     Active Substance: CETIRIZINE HYDROCHLORIDE
  4. OMEPRAZOLE. [Concomitant]
     Active Substance: OMEPRAZOLE
  5. BAMLANIVIMAB FOR EUA [Suspect]
     Active Substance: BAMLANIVIMAB
     Indication: COVID-19
     Route: 042
     Dates: start: 20210202, end: 20210202
  6. MONTELUKAST [Concomitant]
     Active Substance: MONTELUKAST SODIUM
  7. PAROXETINE. [Concomitant]
     Active Substance: PAROXETINE

REACTIONS (9)
  - Hypoxia [None]
  - Troponin increased [None]
  - Infusion related reaction [None]
  - Feeling cold [None]
  - Hypertension [None]
  - Chills [None]
  - Oxygen saturation decreased [None]
  - Nausea [None]
  - Respiratory rate increased [None]

NARRATIVE: CASE EVENT DATE: 20210202
